FAERS Safety Report 9758451 (Version 1)
Quarter: 2013Q4

REPORT INFORMATION
  Report Type: Spontaneous
  Country: IT (occurrence: IT)
  Receive Date: 20131216
  Receipt Date: 20131216
  Transmission Date: 20140711
  Serious: Yes (Other)
  Sender: FDA-Public Use
  Company Number: IT-MYLANLABS-113AS20130374

PATIENT
  Age: 32 Year
  Sex: Female
  Weight: 0 kg

DRUGS (2)
  1. OXYBUTYNIN HYDROCHLORIDE [Suspect]
     Indication: MICTURITION URGENCY
     Route: 048
     Dates: start: 20131104, end: 20131107
  2. FERRO-GRAD [Concomitant]
     Indication: PRODUCT USED FOR UNKNOWN INDICATION

REACTIONS (4)
  - Chest pain [Recovered/Resolved]
  - Headache [Recovered/Resolved]
  - Palpitations [Recovered/Resolved]
  - Tremor [Recovered/Resolved]
